FAERS Safety Report 9209412 (Version 1)
Quarter: 2013Q2

REPORT INFORMATION
  Report Type: Spontaneous
  Country: US (occurrence: None)
  Receive Date: 20130403
  Receipt Date: 20130403
  Transmission Date: 20140414
  Serious: Yes (Life-Threatening)
  Sender: FDA-Public Use
  Company Number: None

PATIENT
  Age: 76 Year
  Sex: Female
  Weight: 82.1 kg

DRUGS (1)
  1. DEXILANT [Suspect]
     Indication: GASTROOESOPHAGEAL REFLUX DISEASE
     Dosage: 1 DAILY
     Dates: start: 20130306

REACTIONS (7)
  - Nausea [None]
  - Abdominal pain upper [None]
  - Arthralgia [None]
  - Bone pain [None]
  - Flatulence [None]
  - Diarrhoea [None]
  - Pain in extremity [None]
